FAERS Safety Report 16759286 (Version 1)
Quarter: 2019Q3

REPORT INFORMATION
  Report Type: Spontaneous
  Country: US (occurrence: US)
  Receive Date: 20190830
  Receipt Date: 20190830
  Transmission Date: 20191005
  Serious: No
  Sender: FDA-Public Use
  Company Number: US-TEVA-2019-US-1102105

PATIENT

DRUGS (2)
  1. LAYOLIS FE CHEW [Concomitant]
  2. COPAXONE [Suspect]
     Active Substance: GLATIRAMER ACETATE
     Indication: MULTIPLE SCLEROSIS
     Dosage: PRE-FILLED SYRINGE
     Route: 058
     Dates: start: 20190523

REACTIONS (2)
  - Injection site mass [Not Recovered/Not Resolved]
  - Injection site bruising [Not Recovered/Not Resolved]
